FAERS Safety Report 7150126-7 (Version None)
Quarter: 2010Q4

REPORT INFORMATION
  Report Type: 
  Country: None (occurrence: None)
  Receive Date: 20101210
  Receipt Date: 20101207
  Transmission Date: 20110411
  Serious: Yes (Other)
  Sender: FDA-Public Use
  Company Number: BR-BAYER-2010-002405

PATIENT
  Sex: Female

DRUGS (6)
  1. GLUCOBAY [Suspect]
     Indication: HYPERINSULINISM
     Dosage: 50 MG, MT
     Route: 048
     Dates: start: 20090101, end: 20101128
  2. UNCODEABLE ^UNCLASSIFIABLE^ [Concomitant]
     Indication: CONTRACEPTION
     Dosage: 1 DF, QD
     Route: 048
     Dates: start: 20100901
  3. DAFORIN [Concomitant]
     Indication: STRESS
     Dosage: 1 DF, QD
     Route: 048
     Dates: start: 20090101
  4. DAFORIN [Concomitant]
     Indication: ANXIETY
  5. TOPAMAX [Concomitant]
     Indication: DEPRESSION
     Dosage: 1 DF, QD
     Route: 048
     Dates: start: 20090101
  6. TOPAMAX [Concomitant]
     Indication: EPILEPSY

REACTIONS (3)
  - DIZZINESS [None]
  - HEADACHE [None]
  - HYPERHIDROSIS [None]
